FAERS Safety Report 8802715 (Version 1)
Quarter: 2012Q4

REPORT INFORMATION
  Report Type: 
  Country: FR (occurrence: FR)
  Receive Date: 20120921
  Receipt Date: 20120921
  Transmission Date: 20130627
  Serious: Yes (Death, Hospitalization)
  Sender: FDA-Public Use
  Company Number: PHHY2012FR081467

PATIENT
  Age: 75 Year
  Sex: Female

DRUGS (2)
  1. TACROLIMUS [Suspect]
     Indication: IMMUNOSUPPRESSION
     Dosage: 3 mg, QD
     Route: 048
  2. PREDNISONE [Suspect]
     Indication: IMMUNOSUPPRESSION
     Dosage: 7.5 mg, QD
     Route: 048

REACTIONS (8)
  - Death [Fatal]
  - Phaehyphomycosis [Recovered/Resolved]
  - Alternaria infection [Recovered/Resolved]
  - Skin mass [Recovered/Resolved]
  - Aspergillosis [Recovered/Resolved]
  - Pulmonary mass [Recovered/Resolved]
  - Lymphadenopathy mediastinal [Recovered/Resolved]
  - Haemoptysis [Recovered/Resolved]
